FAERS Safety Report 15742481 (Version 2)
Quarter: 2019Q1

REPORT INFORMATION
  Report Type: Spontaneous
  Country: JP (occurrence: JP)
  Receive Date: 20181219
  Receipt Date: 20190124
  Transmission Date: 20190417
  Serious: Yes (Hospitalization, Other)
  Sender: FDA-Public Use
  Company Number: JP-GILEAD-2018-0380763

PATIENT
  Age: 54 Year
  Sex: Male
  Weight: 64.2 kg

DRUGS (1)
  1. ADEFOVIR DIPIVOXIL. [Suspect]
     Active Substance: ADEFOVIR DIPIVOXIL
     Indication: PRODUCT USED FOR UNKNOWN INDICATION
     Dosage: UNK
     Route: 065

REACTIONS (6)
  - Necrosis [Unknown]
  - Multiple fractures [Unknown]
  - Osteoporosis [Unknown]
  - Hypophosphataemia [Unknown]
  - Fanconi syndrome acquired [Unknown]
  - Renal tubular disorder [Unknown]
